FAERS Safety Report 6812608-4 (Version None)
Quarter: 2010Q3

REPORT INFORMATION
  Report Type: 
  Country: None (occurrence: None)
  Receive Date: 20100701
  Receipt Date: 20100623
  Transmission Date: 20110219
  Serious: Yes (Other)
  Sender: FDA-Public Use
  Company Number: US-PFIZER INC-2010062985

PATIENT
  Sex: Male

DRUGS (1)
  1. CHANTIX [Suspect]
     Dosage: 1 MG, 2X/DAY
     Route: 048
     Dates: start: 20060101, end: 20090112

REACTIONS (5)
  - ARTHRALGIA [None]
  - DEPRESSION [None]
  - DYSPHORIA [None]
  - MYALGIA [None]
  - PAIN [None]
